FAERS Safety Report 5394018-2 (Version None)
Quarter: 2007Q3

REPORT INFORMATION
  Report Type: 
  Country: None (occurrence: None)
  Receive Date: 20070719
  Receipt Date: 20070719
  Transmission Date: 20080115
  Serious: Yes (Death)
  Sender: FDA-Public Use
  Company Number: None

PATIENT
  Age: 85 Year
  Sex: Female

DRUGS (7)
  1. GABAPENTIN [Suspect]
     Indication: DIABETIC NEUROPATHY
     Dosage: 150 MG/ THREE TIMES PER DAY/
  2. INSULIN LISPRO (FORMULATION UNKNOWN) (GENERIC) (INSULIN LISPRO) [Suspect]
     Indication: DIABETES MELLITUS
     Dosage: 6 UNIT/ THREE TIMES PER DAY
  3. RAMIPRIL [Suspect]
     Indication: HYPERTENSION
  4. ASPIRIN [Suspect]
     Indication: DRUG USE FOR UNKNOWN INDICATION
  5. DILTIAZEM HCL [Suspect]
     Indication: DRUG USE FOR UNKNOWN INDICATION
  6. HALOPERIDOL [Suspect]
     Indication: PSYCHOMOTOR HYPERACTIVITY
     Dosage: 10 MG
  7. LANSOPRAZOLE [Suspect]
     Indication: ABDOMINAL PAIN UPPER
     Dosage: 30 MG

REACTIONS (12)
  - ABDOMINAL PAIN UPPER [None]
  - CARDIAC VENTRICULAR DISORDER [None]
  - CONDITION AGGRAVATED [None]
  - DISEASE PROGRESSION [None]
  - ELECTROCARDIOGRAM ST-T CHANGE [None]
  - GENERAL PHYSICAL HEALTH DETERIORATION [None]
  - MYOPATHY [None]
  - PSYCHOMOTOR HYPERACTIVITY [None]
  - PULMONARY CONGESTION [None]
  - RENAL FAILURE ACUTE [None]
  - RESPIRATORY FAILURE [None]
  - SOMNOLENCE [None]
